FAERS Safety Report 6523301-X (Version None)
Quarter: 2009Q4

REPORT INFORMATION
  Report Type: 
  Country: None (occurrence: None)
  Receive Date: 20091231
  Receipt Date: 20091222
  Transmission Date: 20100525
  Serious: Yes (Other)
  Sender: FDA-Public Use
  Company Number: BR-JNJFOC-20091207348

PATIENT
  Age: 70 Year
  Sex: Female
  Weight: 57 kg

DRUGS (3)
  1. REMINYL ER [Suspect]
     Indication: DEMENTIA ALZHEIMER'S TYPE
     Route: 065
  2. CITALOPRAM HYDROBROMIDE [Interacting]
     Indication: DEPRESSION
     Route: 065
  3. PAMELOR [Interacting]
     Indication: MUSCLE RELAXANT THERAPY
     Dosage: 10 MG TABLET AT 12 PM AND 25 MG AT NIGHT
     Route: 065

REACTIONS (6)
  - DIZZINESS [None]
  - DRUG INTERACTION [None]
  - INCOHERENT [None]
  - MALAISE [None]
  - SOMNOLENCE [None]
  - SPEECH DISORDER [None]
